FAERS Safety Report 20316453 (Version 1)
Quarter: 2022Q1

REPORT INFORMATION
  Report Type: Spontaneous
  Country: NL (occurrence: NL)
  Receive Date: 20220110
  Receipt Date: 20220110
  Transmission Date: 20220423
  Serious: Yes (Other)
  Sender: FDA-Public Use
  Company Number: NL-LRB-00736959

PATIENT
  Age: 36 Year
  Sex: Female
  Weight: 75 kg

DRUGS (2)
  1. AMOXICILLIN [Suspect]
     Active Substance: AMOXICILLIN
     Indication: Arthropod bite
     Dosage: UNK (3X A DAY 1 PIECE)
     Route: 065
     Dates: start: 20210719, end: 20210728
  2. COMIRNATY [Suspect]
     Active Substance: TOZINAMERAN
     Indication: COVID-19 immunisation
     Dosage: 1 DOSAGE FORM
     Route: 065
     Dates: start: 20210717

REACTIONS (6)
  - Abortion spontaneous [Unknown]
  - Headache [Unknown]
  - Chills [Unknown]
  - Malaise [Unknown]
  - Pyrexia [Unknown]
  - Maternal exposure during pregnancy [Unknown]

NARRATIVE: CASE EVENT DATE: 20210728
